FAERS Safety Report 14425595 (Version 1)
Quarter: 2018Q1

REPORT INFORMATION
  Report Type: Spontaneous
  Country: US (occurrence: US)
  Receive Date: 20180122
  Receipt Date: 20180122
  Transmission Date: 20180509
  Serious: No
  Sender: FDA-Public Use
  Company Number: None

PATIENT
  Age: 3 Year
  Sex: Male
  Weight: 14.4 kg

DRUGS (2)
  1. CHILDREN^S VITAMIN DAILY [Concomitant]
  2. OSELTAMIVIR [Suspect]
     Active Substance: OSELTAMIVIR
     Indication: INFLUENZA
     Dosage: ?          QUANTITY:7.5 ML;?
     Route: 048
     Dates: start: 20180108, end: 20180113

REACTIONS (4)
  - Anger [None]
  - Middle insomnia [None]
  - Aggression [None]
  - Screaming [None]

NARRATIVE: CASE EVENT DATE: 20180110
